FAERS Safety Report 10743154 (Version 1)
Quarter: 2015Q1

REPORT INFORMATION
  Report Type: Spontaneous
  Country: US (occurrence: US)
  Receive Date: 20150127
  Receipt Date: 20150127
  Transmission Date: 20150721
  Serious: No
  Sender: FDA-Public Use
  Company Number: US-GLAXOSMITHKLINE-A1052951A

PATIENT

DRUGS (2)
  1. BUPROPION TABLET [Suspect]
     Active Substance: BUPROPION
  2. WELLBUTRIN XL [Suspect]
     Active Substance: BUPROPION HYDROCHLORIDE
     Indication: DEPRESSION
     Route: 065

REACTIONS (3)
  - Depressive symptom [Unknown]
  - Seasonal affective disorder [Unknown]
  - Drug ineffective [Unknown]
